FAERS Safety Report 14683756 (Version 6)
Quarter: 2022Q3

REPORT INFORMATION
  Report Type: Spontaneous
  Country: US (occurrence: None)
  Receive Date: 20180327
  Receipt Date: 20220830
  Transmission Date: 20221026
  Serious: Yes (Other)
  Sender: FDA-Public Use
  Company Number: 2018SE34908

PATIENT
  Age: 21622 Day
  Sex: Male
  Weight: 75.8 kg

DRUGS (49)
  1. NEXIUM [Suspect]
     Active Substance: ESOMEPRAZOLE MAGNESIUM
     Indication: Gastrooesophageal reflux disease
     Route: 048
     Dates: start: 2010, end: 2017
  2. NEXIUM [Suspect]
     Active Substance: ESOMEPRAZOLE MAGNESIUM
     Indication: Gastrooesophageal reflux disease
     Dosage: GENERIC
     Route: 065
     Dates: start: 2010, end: 2017
  3. NEXIUM [Suspect]
     Active Substance: ESOMEPRAZOLE MAGNESIUM
     Indication: Gastrooesophageal reflux disease
     Route: 048
     Dates: start: 20130910
  4. OMEPRAZOLE [Suspect]
     Active Substance: OMEPRAZOLE
     Indication: Gastrooesophageal reflux disease
     Route: 065
     Dates: start: 2017
  5. OMEPRAZOLE [Suspect]
     Active Substance: OMEPRAZOLE
     Indication: Gastrooesophageal reflux disease
     Dosage: GENERIC
     Route: 065
  6. PROTONIX [Suspect]
     Active Substance: PANTOPRAZOLE SODIUM
     Indication: Gastrooesophageal reflux disease
     Route: 065
     Dates: start: 2015
  7. LYRICA [Concomitant]
     Active Substance: PREGABALIN
     Indication: Neuralgia
     Route: 065
     Dates: start: 2013, end: 2016
  8. GLIPIZIDE [Concomitant]
     Active Substance: GLIPIZIDE
     Indication: Diabetes mellitus
     Route: 065
     Dates: start: 2005, end: 2016
  9. INSULIN NOS [Concomitant]
     Active Substance: INSULIN NOS
     Indication: Diabetes mellitus
     Route: 065
     Dates: start: 2015
  10. ATORVASTATIN [Concomitant]
     Active Substance: ATORVASTATIN
     Indication: Blood cholesterol
     Route: 065
     Dates: start: 2012, end: 2016
  11. TUMS [Concomitant]
     Active Substance: CALCIUM CARBONATE
     Indication: Blood cholesterol
     Dosage: 4-6 PER DAY
     Route: 065
     Dates: start: 2004, end: 2008
  12. CLOPIDOGREL [Concomitant]
     Active Substance: CLOPIDOGREL BISULFATE
     Indication: Blood cholesterol
     Route: 065
  13. CILOSTAZOL [Concomitant]
     Active Substance: CILOSTAZOL
     Indication: Blood cholesterol
     Route: 065
  14. TYLENOL [Concomitant]
     Active Substance: ACETAMINOPHEN
     Indication: Blood cholesterol
     Route: 065
  15. WELLBUTRIN [Concomitant]
     Active Substance: BUPROPION HYDROCHLORIDE
     Indication: Ex-tobacco user
     Route: 065
     Dates: start: 2009, end: 2010
  16. VALTREX [Concomitant]
     Active Substance: VALACYCLOVIR HYDROCHLORIDE
     Indication: Blood cholesterol
     Route: 065
     Dates: start: 2007, end: 2010
  17. METFORMIN [Concomitant]
     Active Substance: METFORMIN HYDROCHLORIDE
     Indication: Blood cholesterol
     Route: 065
     Dates: start: 2007, end: 2010
  18. DICYCLOMINE [Concomitant]
     Active Substance: DICYCLOMINE HYDROCHLORIDE
     Dates: start: 20180917
  19. HUMALOG [Concomitant]
     Active Substance: INSULIN LISPRO
     Dates: start: 20180917
  20. BACLOFEN [Concomitant]
     Active Substance: BACLOFEN
  21. ASPIRIN [Concomitant]
     Active Substance: ASPIRIN
     Dates: start: 20180521
  22. TRICOR [Concomitant]
     Active Substance: FENOFIBRATE
  23. GABAPENTIN [Concomitant]
     Active Substance: GABAPENTIN
  24. KETOROLAC [Concomitant]
     Active Substance: KETOROLAC TROMETHAMINE
  25. AZOR [Concomitant]
     Active Substance: AMLODIPINE BESYLATE\OLMESARTAN MEDOXOMIL
  26. MELOXICAM [Concomitant]
     Active Substance: MELOXICAM
  27. PLAVIX [Concomitant]
     Active Substance: CLOPIDOGREL BISULFATE
  28. AMLODIPINE BESYLATE\OLMESARTAN MEDOXOMIL [Concomitant]
     Active Substance: AMLODIPINE BESYLATE\OLMESARTAN MEDOXOMIL
  29. FLEXERIL [Concomitant]
     Active Substance: CYCLOBENZAPRINE HYDROCHLORIDE
  30. ADVIL [Concomitant]
     Active Substance: IBUPROFEN
  31. LANTUS SOLOSTAR [Concomitant]
     Active Substance: INSULIN GLARGINE
  32. DESYREL [Concomitant]
     Active Substance: TRAZODONE HYDROCHLORIDE
  33. PERCOCET [Concomitant]
     Active Substance: ACETAMINOPHEN\OXYCODONE HYDROCHLORIDE
  34. CLEOCIN [Concomitant]
     Active Substance: CLINDAMYCIN PHOSPHATE
  35. NORCO [Concomitant]
     Active Substance: ACETAMINOPHEN\HYDROCODONE BITARTRATE
  36. FENTANYL [Concomitant]
     Active Substance: FENTANYL
  37. MIDAZOLAM [Concomitant]
     Active Substance: MIDAZOLAM
  38. ATORVASTATIN CALCIUM [Concomitant]
     Active Substance: ATORVASTATIN CALCIUM
  39. AMLODIPINE BESYLATE [Concomitant]
     Active Substance: AMLODIPINE BESYLATE
  40. FERROUS SULFATE [Concomitant]
     Active Substance: FERROUS SULFATE
  41. SILDENAFIL CITRATE [Concomitant]
     Active Substance: SILDENAFIL CITRATE
  42. ACETAMINOPHEN [Concomitant]
     Active Substance: ACETAMINOPHEN
  43. DICLOFENAC SODIUM [Concomitant]
     Active Substance: DICLOFENAC SODIUM
  44. CARBAMIDE PEROXIDE [Concomitant]
     Active Substance: CARBAMIDE PEROXIDE
  45. VARENICLINE TARTRATE [Concomitant]
     Active Substance: VARENICLINE TARTRATE
  46. OFLOXACIN [Concomitant]
     Active Substance: OFLOXACIN
  47. PREDNISOLONE ACETATE [Concomitant]
     Active Substance: PREDNISOLONE ACETATE
  48. IRBESARTAN [Concomitant]
     Active Substance: IRBESARTAN
  49. FLUVIRIN NOS [Concomitant]
     Active Substance: INFLUENZA VIRUS VACCINE

REACTIONS (5)
  - Acute kidney injury [Not Recovered/Not Resolved]
  - Chronic kidney disease [Not Recovered/Not Resolved]
  - Renal failure [Unknown]
  - Nephrogenic anaemia [Unknown]
  - Chronic kidney disease-mineral and bone disorder [Unknown]

NARRATIVE: CASE EVENT DATE: 20180514
